FAERS Safety Report 24563245 (Version 1)
Quarter: 2024Q4

REPORT INFORMATION
  Report Type: Spontaneous
  Country: US (occurrence: US)
  Receive Date: 20241030
  Receipt Date: 20241030
  Transmission Date: 20250115
  Serious: Yes (Other)
  Sender: JOHNSON AND JOHNSON
  Company Number: US-JNJFOC-20241077909

PATIENT
  Age: 38 Year
  Sex: Female

DRUGS (2)
  1. SPRAVATO [Suspect]
     Active Substance: ESKETAMINE
     Indication: Depression
     Dosage: ^56 MG,1 TOTAL DOSE^
     Dates: start: 20240813, end: 20240813
  2. SPRAVATO [Suspect]
     Active Substance: ESKETAMINE
     Dosage: ^84 MG, 12 TOTAL DOSES^
     Dates: start: 20240815, end: 20241023

REACTIONS (2)
  - Craniofacial fracture [Unknown]
  - Nasal septum deviation [Unknown]

NARRATIVE: CASE EVENT DATE: 20240901
